FAERS Safety Report 7540606-4 (Version None)
Quarter: 2011Q2

REPORT INFORMATION
  Report Type: 
  Country: None (occurrence: None)
  Receive Date: 20110610
  Receipt Date: 20110606
  Transmission Date: 20111010
  Serious: Yes (Hospitalization)
  Sender: FDA-Public Use
  Company Number: DE-SANOFI-AVENTIS-2011SA034373

PATIENT
  Age: 62 Year
  Sex: Male

DRUGS (1)
  1. TAXOTERE [Suspect]
     Route: 065

REACTIONS (9)
  - NEUTROPENIA [None]
  - OESOPHAGEAL CANDIDIASIS [None]
  - NAUSEA [None]
  - LEUKOPENIA [None]
  - DECREASED APPETITE [None]
  - MUCOSAL INFLAMMATION [None]
  - ABDOMINAL PAIN UPPER [None]
  - THROMBOCYTOPENIA [None]
  - GASTRIC ULCER [None]
